FAERS Safety Report 7166232-7 (Version None)
Quarter: 2010Q4

REPORT INFORMATION
  Report Type: 
  Country: None (occurrence: None)
  Receive Date: 20101202
  Receipt Date: 20101124
  Transmission Date: 20110411
  Serious: Yes (Hospitalization)
  Sender: FDA-Public Use
  Company Number: 021679

PATIENT
  Sex: Male
  Weight: 93 kg

DRUGS (1)
  1. CIMZIA [Suspect]
     Indication: CROHN'S DISEASE
     Dosage: SEE IMAGE
     Route: 058
     Dates: start: 20041117, end: 20101019

REACTIONS (3)
  - CONDITION AGGRAVATED [None]
  - CROHN'S DISEASE [None]
  - ILEITIS [None]
